FAERS Safety Report 6786412-X (Version None)
Quarter: 2010Q2

REPORT INFORMATION
  Report Type: 
  Country: None (occurrence: None)
  Receive Date: 20100623
  Receipt Date: 20100622
  Transmission Date: 20101027
  Serious: Yes (Hospitalization)
  Sender: FDA-Public Use
  Company Number: A0854011A

PATIENT
  Age: 36 Year
  Sex: Female

DRUGS (4)
  1. ADVAIR DISKUS 100/50 [Suspect]
     Indication: ASTHMA
     Dosage: 1PUFF TWICE PER DAY
     Route: 055
     Dates: start: 20030101, end: 20100101
  2. PREDNISOLONE [Concomitant]
     Route: 048
     Dates: start: 20030101, end: 20100101
  3. ANTIHISTAMINES [Concomitant]
  4. STEROIDS [Concomitant]
     Route: 045

REACTIONS (2)
  - HIP ARTHROPLASTY [None]
  - OSTEONECROSIS [None]
